FAERS Safety Report 26113941 (Version 1)
Quarter: 2025Q4

REPORT INFORMATION
  Report Type: Spontaneous
  Country: EU (occurrence: EU)
  Receive Date: 20251202
  Receipt Date: 20251202
  Transmission Date: 20260118
  Serious: Yes (Disabling)
  Sender: MYLAN
  Company Number: None

PATIENT
  Age: 77 Year
  Sex: Female
  Weight: 73 kg

DRUGS (52)
  1. SPIRONOLACTONE [Suspect]
     Active Substance: SPIRONOLACTONE
     Indication: Hypertension
     Dosage: 1 DOSAGE FORM, QD
     Dates: start: 20250429, end: 20250929
  2. SPIRONOLACTONE [Suspect]
     Active Substance: SPIRONOLACTONE
     Dosage: 1 DOSAGE FORM, QD
     Route: 048
     Dates: start: 20250429, end: 20250929
  3. SPIRONOLACTONE [Suspect]
     Active Substance: SPIRONOLACTONE
     Dosage: 1 DOSAGE FORM, QD
     Route: 048
     Dates: start: 20250429, end: 20250929
  4. SPIRONOLACTONE [Suspect]
     Active Substance: SPIRONOLACTONE
     Dosage: 1 DOSAGE FORM, QD
     Dates: start: 20250429, end: 20250929
  5. FUROSEMIDE [Suspect]
     Active Substance: FUROSEMIDE
     Indication: Hypertension
     Dosage: 1 DOSAGE FORM, QD
     Dates: start: 20250429, end: 20250929
  6. FUROSEMIDE [Suspect]
     Active Substance: FUROSEMIDE
     Dosage: 1 DOSAGE FORM, QD
     Route: 048
     Dates: start: 20250429, end: 20250929
  7. FUROSEMIDE [Suspect]
     Active Substance: FUROSEMIDE
     Dosage: 1 DOSAGE FORM, QD
     Route: 048
     Dates: start: 20250429, end: 20250929
  8. FUROSEMIDE [Suspect]
     Active Substance: FUROSEMIDE
     Dosage: 1 DOSAGE FORM, QD
     Dates: start: 20250429, end: 20250929
  9. PROPRANOLOL HYDROCHLORIDE [Suspect]
     Active Substance: PROPRANOLOL HYDROCHLORIDE
     Indication: Atrial fibrillation
     Dosage: 1 DOSAGE FORM, QD
     Dates: end: 20250929
  10. PROPRANOLOL HYDROCHLORIDE [Suspect]
     Active Substance: PROPRANOLOL HYDROCHLORIDE
     Dosage: 1 DOSAGE FORM, QD
     Route: 048
     Dates: end: 20250929
  11. PROPRANOLOL HYDROCHLORIDE [Suspect]
     Active Substance: PROPRANOLOL HYDROCHLORIDE
     Dosage: 1 DOSAGE FORM, QD
     Route: 048
     Dates: end: 20250929
  12. PROPRANOLOL HYDROCHLORIDE [Suspect]
     Active Substance: PROPRANOLOL HYDROCHLORIDE
     Dosage: 1 DOSAGE FORM, QD
     Dates: end: 20250929
  13. CALCIUM CARBONATE\CHOLECALCIFEROL [Suspect]
     Active Substance: CALCIUM CARBONATE\CHOLECALCIFEROL
     Indication: Hypercalcaemia
     Dosage: 2 GRAM, QD
     Dates: start: 20250425, end: 20250929
  14. CALCIUM CARBONATE\CHOLECALCIFEROL [Suspect]
     Active Substance: CALCIUM CARBONATE\CHOLECALCIFEROL
     Dosage: 2 GRAM, QD
     Route: 048
     Dates: start: 20250425, end: 20250929
  15. CALCIUM CARBONATE\CHOLECALCIFEROL [Suspect]
     Active Substance: CALCIUM CARBONATE\CHOLECALCIFEROL
     Dosage: 2 GRAM, QD
     Route: 048
     Dates: start: 20250425, end: 20250929
  16. CALCIUM CARBONATE\CHOLECALCIFEROL [Suspect]
     Active Substance: CALCIUM CARBONATE\CHOLECALCIFEROL
     Dosage: 2 GRAM, QD
     Dates: start: 20250425, end: 20250929
  17. ALFACALCIDOL [Suspect]
     Active Substance: ALFACALCIDOL
     Indication: Hypercalcaemia
     Dosage: 3 DOSAGE FORM, QD
     Dates: start: 20250425, end: 20250929
  18. ALFACALCIDOL [Suspect]
     Active Substance: ALFACALCIDOL
     Dosage: 3 DOSAGE FORM, QD
     Route: 048
     Dates: start: 20250425, end: 20250929
  19. ALFACALCIDOL [Suspect]
     Active Substance: ALFACALCIDOL
     Dosage: 3 DOSAGE FORM, QD
     Route: 048
     Dates: start: 20250425, end: 20250929
  20. ALFACALCIDOL [Suspect]
     Active Substance: ALFACALCIDOL
     Dosage: 3 DOSAGE FORM, QD
     Dates: start: 20250425, end: 20250929
  21. FLECAINIDE [Suspect]
     Active Substance: FLECAINIDE
     Indication: Atrial fibrillation
     Dosage: UNK
  22. FLECAINIDE [Suspect]
     Active Substance: FLECAINIDE
     Dosage: UNK
     Route: 048
  23. FLECAINIDE [Suspect]
     Active Substance: FLECAINIDE
     Dosage: UNK
     Route: 048
  24. FLECAINIDE [Suspect]
     Active Substance: FLECAINIDE
     Dosage: UNK
  25. DIGOXIN [Suspect]
     Active Substance: DIGOXIN
     Indication: Atrial fibrillation
     Dosage: UNK
  26. DIGOXIN [Suspect]
     Active Substance: DIGOXIN
     Dosage: UNK
     Route: 048
  27. DIGOXIN [Suspect]
     Active Substance: DIGOXIN
     Dosage: UNK
     Route: 048
  28. DIGOXIN [Suspect]
     Active Substance: DIGOXIN
     Dosage: UNK
  29. LEVOTHYROXINE [Concomitant]
     Active Substance: LEVOTHYROXINE
     Dosage: UNK
  30. LEVOTHYROXINE [Concomitant]
     Active Substance: LEVOTHYROXINE
     Dosage: UNK
     Route: 065
  31. LEVOTHYROXINE [Concomitant]
     Active Substance: LEVOTHYROXINE
     Dosage: UNK
     Route: 065
  32. LEVOTHYROXINE [Concomitant]
     Active Substance: LEVOTHYROXINE
     Dosage: UNK
  33. ESOMEPRAZOLE [Concomitant]
     Active Substance: ESOMEPRAZOLE
     Dosage: UNK
  34. ESOMEPRAZOLE [Concomitant]
     Active Substance: ESOMEPRAZOLE
     Dosage: UNK
     Route: 065
  35. ESOMEPRAZOLE [Concomitant]
     Active Substance: ESOMEPRAZOLE
     Dosage: UNK
     Route: 065
  36. ESOMEPRAZOLE [Concomitant]
     Active Substance: ESOMEPRAZOLE
     Dosage: UNK
  37. PRAMIPEXOLE DIHYDROCHLORIDE [Concomitant]
     Active Substance: PRAMIPEXOLE DIHYDROCHLORIDE
     Dosage: UNK
  38. PRAMIPEXOLE DIHYDROCHLORIDE [Concomitant]
     Active Substance: PRAMIPEXOLE DIHYDROCHLORIDE
     Dosage: UNK
     Route: 065
  39. PRAMIPEXOLE DIHYDROCHLORIDE [Concomitant]
     Active Substance: PRAMIPEXOLE DIHYDROCHLORIDE
     Dosage: UNK
     Route: 065
  40. PRAMIPEXOLE DIHYDROCHLORIDE [Concomitant]
     Active Substance: PRAMIPEXOLE DIHYDROCHLORIDE
     Dosage: UNK
  41. ELIQUIS [Concomitant]
     Active Substance: APIXABAN
     Dosage: UNK
  42. ELIQUIS [Concomitant]
     Active Substance: APIXABAN
     Dosage: UNK
     Route: 065
  43. ELIQUIS [Concomitant]
     Active Substance: APIXABAN
     Dosage: UNK
     Route: 065
  44. ELIQUIS [Concomitant]
     Active Substance: APIXABAN
     Dosage: UNK
  45. FOLIC ACID [Concomitant]
     Active Substance: FOLIC ACID
     Dosage: UNK
  46. FOLIC ACID [Concomitant]
     Active Substance: FOLIC ACID
     Dosage: UNK
     Route: 065
  47. FOLIC ACID [Concomitant]
     Active Substance: FOLIC ACID
     Dosage: UNK
     Route: 065
  48. FOLIC ACID [Concomitant]
     Active Substance: FOLIC ACID
     Dosage: UNK
  49. PRAMIPEXOLE [Concomitant]
     Active Substance: PRAMIPEXOLE
     Dosage: UNK
  50. PRAMIPEXOLE [Concomitant]
     Active Substance: PRAMIPEXOLE
     Dosage: UNK
     Route: 065
  51. PRAMIPEXOLE [Concomitant]
     Active Substance: PRAMIPEXOLE
     Dosage: UNK
     Route: 065
  52. PRAMIPEXOLE [Concomitant]
     Active Substance: PRAMIPEXOLE
     Dosage: UNK

REACTIONS (3)
  - Bradycardia [Recovered/Resolved]
  - Hypercalcaemia [Recovered/Resolved]
  - Acute kidney injury [Recovered/Resolved]

NARRATIVE: CASE EVENT DATE: 20250929
